FAERS Safety Report 9049231 (Version 1)
Quarter: 2013Q1

REPORT INFORMATION
  Report Type: Spontaneous
  Country: US (occurrence: None)
  Receive Date: 20130130
  Receipt Date: 20130130
  Transmission Date: 20140127
  Serious: Yes (Life-Threatening)
  Sender: FDA-Public Use
  Company Number: None

PATIENT
  Age: 87 Year
  Sex: Male

DRUGS (1)
  1. LISINOPRIL (DOSAGE) GENERIC [Suspect]
     Indication: HYPERTENSION
     Dosage: USED FOR 2 MONTHS PRIOR TO SURGERY

REACTIONS (6)
  - Oropharyngeal pain [None]
  - Haemoptysis [None]
  - Angioedema [None]
  - Swollen tongue [None]
  - Lip swelling [None]
  - Renal failure [None]
